FAERS Safety Report 24035705 (Version 1)
Quarter: 2024Q3

REPORT INFORMATION
  Report Type: Spontaneous
  Country: US (occurrence: US)
  Receive Date: 20240701
  Receipt Date: 20240701
  Transmission Date: 20241016
  Serious: Yes (Hospitalization, Other)
  Sender: APOTEX
  Company Number: US-APOTEX-2024AP007710

PATIENT
  Age: 60 Year
  Sex: Female

DRUGS (3)
  1. CARFILZOMIB [Suspect]
     Active Substance: CARFILZOMIB
     Indication: Plasma cell myeloma recurrent
     Dosage: UNK
     Route: 065
  2. POMALIDOMIDE [Concomitant]
     Active Substance: POMALIDOMIDE
     Indication: Plasma cell myeloma recurrent
     Dosage: UNK
     Route: 065
  3. DEXAMETHASONE [Concomitant]
     Active Substance: DEXAMETHASONE
     Indication: Plasma cell myeloma recurrent
     Dosage: UNK
     Route: 065

REACTIONS (4)
  - Pulmonary alveolar haemorrhage [Unknown]
  - Acute respiratory failure [Unknown]
  - Acute kidney injury [Unknown]
  - Anaemia [Unknown]
